FAERS Safety Report 22305745 (Version 1)
Quarter: 2023Q2

REPORT INFORMATION
  Report Type: Other
  Country: US (occurrence: US)
  Receive Date: 20230510
  Receipt Date: 20230510
  Transmission Date: 20230722
  Serious: No
  Sender: FDA-Public Use
  Company Number: US-ALVOGEN-2023089038

PATIENT
  Age: 37 Year
  Sex: Male

DRUGS (2)
  1. METHOTREXATE [Suspect]
     Active Substance: METHOTREXATE
     Indication: Multicentric reticulohistiocytosis
  2. In?iximab [Concomitant]
     Indication: Multicentric reticulohistiocytosis
     Dosage: EVERY 8 WEEKS
     Route: 040

REACTIONS (1)
  - Off label use [Unknown]
